FAERS Safety Report 5972330-3 (Version None)
Quarter: 2008Q4

REPORT INFORMATION
  Report Type: 
  Country: None (occurrence: None)
  Receive Date: 20081201
  Receipt Date: 20080912
  Transmission Date: 20090506
  Serious: No
  Sender: FDA-Public Use
  Company Number: US-TEVA-177322USA

PATIENT
  Age: 64 Year
  Sex: Male

DRUGS (7)
  1. SALBUTAMOL SULFATE INHALATION, 0.09 MG [Suspect]
     Indication: ASTHMA
  2. ALBUTEROL [Suspect]
     Indication: ASTHMA
  3. FLUTICASONE PROPIONATE [Suspect]
     Indication: ASTHMA
  4. BREVA [Suspect]
     Indication: ASTHMA
  5. SERETIDE [Suspect]
     Indication: ASTHMA
  6. FORMOTEROL FUMARATE [Suspect]
     Indication: ASTHMA
  7. BUDESONIDE W/FORMOTEROL FUMARATE [Suspect]
     Indication: ASTHMA

REACTIONS (1)
  - DRUG INEFFECTIVE [None]
